FAERS Safety Report 11108942 (Version 1)
Quarter: 2015Q2

REPORT INFORMATION
  Report Type: Spontaneous
  Country: IT (occurrence: None)
  Receive Date: 20150511
  Receipt Date: 20150511
  Transmission Date: 20150821
  Serious: Yes (Other)
  Sender: FDA-Public Use
  Company Number: 2015JUB00120

PATIENT
  Age: 33 Year
  Sex: Male

DRUGS (2)
  1. BUPROPION (BUPROPION) UNKNOWN [Suspect]
     Active Substance: BUPROPION
     Indication: DEPRESSION
  2. CLOZAPINE. [Suspect]
     Active Substance: CLOZAPINE
     Indication: SCHIZOPHRENIA

REACTIONS (4)
  - Hallucination [None]
  - Electroencephalogram abnormal [None]
  - Seizure [None]
  - Drug interaction [None]
